FAERS Safety Report 6241901-1 (Version None)
Quarter: 2009Q2

REPORT INFORMATION
  Report Type: 
  Country: None (occurrence: None)
  Receive Date: 20090623
  Receipt Date: 20090611
  Transmission Date: 20091009
  Serious: Yes (Hospitalization)
  Sender: FDA-Public Use
  Company Number: GB-PFIZER INC-2009226183

PATIENT
  Age: 55 Year

DRUGS (17)
  1. GABAPENTIN [Suspect]
  2. LIDOCAINE 2% [Suspect]
     Route: 061
  3. FENTANYL CITRATE [Suspect]
  4. ATENOLOL [Concomitant]
     Indication: HYPERTENSION
  5. HALOPERIDOL [Concomitant]
     Indication: NAUSEA
  6. HALOPERIDOL [Concomitant]
     Indication: VOMITING
  7. LEVOMEPROMAZINE [Concomitant]
     Indication: NAUSEA
  8. LEVOMEPROMAZINE [Concomitant]
     Indication: VOMITING
  9. METHYLPHENIDATE [Concomitant]
  10. METOCLOPRAMIDE [Concomitant]
     Indication: NAUSEA
  11. METOCLOPRAMIDE [Concomitant]
     Indication: VOMITING
  12. MIRTAZAPINE [Concomitant]
  13. ONDANSETRON [Concomitant]
     Indication: NAUSEA
  14. ONDANSETRON [Concomitant]
     Indication: VOMITING
  15. PROCHLORPERAZINE [Concomitant]
     Indication: NAUSEA
  16. PROCHLORPERAZINE [Concomitant]
     Indication: VOMITING
  17. RAMIPRIL [Concomitant]
     Indication: HYPERTENSION

REACTIONS (8)
  - ABDOMINAL PAIN UPPER [None]
  - DIZZINESS [None]
  - ERUCTATION [None]
  - HEADACHE [None]
  - NAUSEA [None]
  - NYSTAGMUS [None]
  - RETCHING [None]
  - TENDERNESS [None]
